FAERS Safety Report 9123805 (Version 1)
Quarter: 2013Q1

REPORT INFORMATION
  Report Type: Spontaneous
  Country: US (occurrence: US)
  Receive Date: 20130227
  Receipt Date: 20130227
  Transmission Date: 20140127
  Serious: No
  Sender: FDA-Public Use
  Company Number: US-PFIZER INC-2013067197

PATIENT
  Age: 15 Year
  Sex: Female
  Weight: 45.35 kg

DRUGS (3)
  1. LYRICA [Suspect]
     Indication: NEURALGIA
     Dosage: 50 MG, 3X/DAY
     Route: 048
     Dates: start: 201211
  2. LYRICA [Suspect]
     Dosage: 50 MG, 1X/DAY
  3. TRAZODONE [Concomitant]
     Indication: ANXIETY
     Dosage: 50 MG, UNK

REACTIONS (2)
  - Off label use [Unknown]
  - Fatigue [Unknown]
